FAERS Safety Report 13624290 (Version 2)
Quarter: 2017Q2

REPORT INFORMATION
  Report Type: Report from Study
  Country: US (occurrence: US)
  Receive Date: 20170608
  Receipt Date: 20170621
  Transmission Date: 20170830
  Serious: Yes (Hospitalization, Other)
  Sender: FDA-Public Use
  Company Number: US-GILEAD-2017-0274261

PATIENT
  Age: 53 Year
  Sex: Male
  Weight: 116 kg

DRUGS (1)
  1. AMBRISENTAN [Suspect]
     Active Substance: AMBRISENTAN
     Indication: PULMONARY ARTERIAL HYPERTENSION
     Dosage: 10 MG, QD
     Route: 048
     Dates: start: 20130821

REACTIONS (6)
  - Syncope [Recovered/Resolved]
  - Fluid overload [Recovered/Resolved]
  - Blood glucose decreased [Recovered/Resolved]
  - Thermal burn [Unknown]
  - End stage renal disease [Recovered/Resolved]
  - Haemoglobin decreased [Recovering/Resolving]

NARRATIVE: CASE EVENT DATE: 201705
